FAERS Safety Report 24604525 (Version 2)
Quarter: 2024Q4

REPORT INFORMATION
  Report Type: Spontaneous
  Country: JP (occurrence: JP)
  Receive Date: 20241111
  Receipt Date: 20241122
  Transmission Date: 20250114
  Serious: Yes (Death)
  Sender: AMERICAN REGENT
  Company Number: JP-AMERICAN REGENT INC-2024004168

PATIENT
  Age: 81 Year
  Sex: Female

DRUGS (3)
  1. TRANSAMIN [Suspect]
     Active Substance: TRANEXAMIC ACID
     Indication: Traumatic subarachnoid haemorrhage
     Dosage: UNK
     Route: 065
  2. ANDEXANET ALFA [Suspect]
     Active Substance: ANDEXANET ALFA
     Indication: Traumatic subarachnoid haemorrhage
     Dosage: UNK
     Route: 065
  3. RIVAROXABAN [Concomitant]
     Active Substance: RIVAROXABAN
     Indication: Product used for unknown indication
     Dosage: UNK
     Route: 048

REACTIONS (1)
  - Aortic occlusion [Fatal]
